FAERS Safety Report 7216942-8 (Version None)
Quarter: 2010Q4

REPORT INFORMATION
  Report Type: 
  Country: None (occurrence: None)
  Receive Date: 20101229
  Receipt Date: 20101203
  Transmission Date: 20110411
  Serious: Yes (Other)
  Sender: FDA-Public Use
  Company Number: 2010SP063074

PATIENT
  Age: 42 Year
  Sex: Male

DRUGS (5)
  1. CLARITIN [Suspect]
     Indication: PRODUCT USED FOR UNKNOWN INDICATION
     Dosage: 10 ML
     Dates: start: 19980101
  2. ATACAND [Concomitant]
  3. OLMETEC [Concomitant]
  4. LABETALOL HCL [Concomitant]
  5. BETA-BLOCKER [Concomitant]

REACTIONS (4)
  - HYPOTENSION [None]
  - MOBILITY DECREASED [None]
  - NEPHROLITHIASIS [None]
  - SOMNOLENCE [None]
